FAERS Safety Report 16375165 (Version 1)
Quarter: 2019Q2

REPORT INFORMATION
  Report Type: Other
  Country: CA (occurrence: CA)
  Receive Date: 20190531
  Receipt Date: 20190531
  Transmission Date: 20190711
  Serious: Yes (Other)
  Sender: FDA-Public Use
  Company Number: CA-APOTEX-2019AP014975

PATIENT
  Age: 73 Year
  Sex: Male

DRUGS (2)
  1. SALBUTAMOL [Suspect]
     Active Substance: ALBUTEROL
     Indication: ASTHMA
     Dosage: UNK
     Route: 065
  2. SALMETEROL XINAFOATE [Suspect]
     Active Substance: SALMETEROL XINAFOATE
     Indication: ASTHMA
     Dosage: UNK
     Route: 065

REACTIONS (8)
  - Dyspnoea [Unknown]
  - Diabetes mellitus [Unknown]
  - Therapeutic product effect incomplete [Unknown]
  - Cardiac disorder [Unknown]
  - Asthma [Unknown]
  - Middle insomnia [Unknown]
  - Wheezing [Unknown]
  - Loss of personal independence in daily activities [Unknown]
